FAERS Safety Report 14222051 (Version 2)
Quarter: 2017Q4

REPORT INFORMATION
  Report Type: Report from Study
  Country: US (occurrence: US)
  Receive Date: 20171124
  Receipt Date: 20171214
  Transmission Date: 20180321
  Serious: Yes (Hospitalization)
  Sender: FDA-Public Use
  Company Number: US-ROCHE-2027471

PATIENT
  Age: 29 Year
  Sex: Female
  Weight: 57.15 kg

DRUGS (24)
  1. DICYCLOMINE [Concomitant]
     Active Substance: DICYCLOMINE HYDROCHLORIDE
     Indication: ABDOMINAL PAIN
     Route: 048
     Dates: start: 20150209
  2. VALACYCLOVIR [Concomitant]
     Active Substance: VALACYCLOVIR HYDROCHLORIDE
     Route: 048
     Dates: start: 20150528
  3. PERTUZUMAB. [Suspect]
     Active Substance: PERTUZUMAB
     Dosage: MAINTENANCE DOSE
     Route: 042
  4. LIDOCAINE/PRILOCAINE [Concomitant]
     Active Substance: LIDOCAINE\PRILOCAINE
     Indication: PAIN
     Dosage: 25-25%
     Route: 061
     Dates: start: 20141219
  5. DOXORUBICIN [Suspect]
     Active Substance: DOXORUBICIN
     Route: 042
     Dates: start: 20150528, end: 20150528
  6. AMLEXANOX [Concomitant]
     Active Substance: AMLEXANOX
     Indication: MOUTH ULCERATION
     Dosage: 5% PASTE
     Route: 061
     Dates: start: 20150522, end: 20160516
  7. DEXAMETHASONE. [Concomitant]
     Active Substance: DEXAMETHASONE
     Indication: PREMEDICATION
     Route: 048
     Dates: start: 20141219
  8. PACLITAXEL. [Suspect]
     Active Substance: PACLITAXEL
     Indication: BREAST CANCER
     Route: 042
     Dates: start: 20150101
  9. CYCLOPHOSPHAMIDE. [Suspect]
     Active Substance: CYCLOPHOSPHAMIDE
     Route: 042
     Dates: start: 20150528, end: 20150528
  10. ONDANSETRON [Concomitant]
     Active Substance: ONDANSETRON
     Indication: NAUSEA
     Route: 048
     Dates: start: 20150209
  11. TRIAMCINOLONE [Concomitant]
     Active Substance: TRIAMCINOLONE
     Indication: MOUTH ULCERATION
     Dosage: 0.1%
     Route: 061
     Dates: start: 20150522
  12. VALACYCLOVIR [Concomitant]
     Active Substance: VALACYCLOVIR HYDROCHLORIDE
     Indication: HERPES ZOSTER
     Route: 048
     Dates: start: 20150522
  13. PERTUZUMAB. [Suspect]
     Active Substance: PERTUZUMAB
     Indication: BREAST CANCER
     Dosage: LOADING DOSE
     Route: 042
     Dates: start: 20150101
  14. PROCHLORPERAZINE. [Concomitant]
     Active Substance: PROCHLORPERAZINE
     Indication: NAUSEA
     Route: 048
     Dates: start: 20150413
  15. TRASTUZUMAB. [Suspect]
     Active Substance: TRASTUZUMAB
     Indication: BREAST CANCER
     Dosage: LOADING DOSE
     Route: 042
     Dates: start: 20150101
  16. CYCLOPHOSPHAMIDE. [Suspect]
     Active Substance: CYCLOPHOSPHAMIDE
     Indication: BREAST CANCER
     Route: 042
     Dates: start: 20150413, end: 20150511
  17. MECLIZINE [Concomitant]
     Active Substance: MECLIZINE HYDROCHLORIDE
     Indication: DIZZINESS
     Route: 048
  18. TRASTUZUMAB. [Suspect]
     Active Substance: TRASTUZUMAB
     Dosage: MAINTENANCE DOSE
     Route: 042
  19. DOXORUBICIN [Suspect]
     Active Substance: DOXORUBICIN
     Indication: BREAST CANCER
     Route: 042
     Dates: start: 20150413, end: 20150511
  20. AMOXICILLIN/CLAVULANATE [Concomitant]
     Active Substance: AMOXICILLIN\CLAVULANATE POTASSIUM
     Indication: NEUTROPENIA
     Dosage: 875/125 MG
     Route: 048
     Dates: start: 20150622
  21. CLINDAMYCIN. [Concomitant]
     Active Substance: CLINDAMYCIN
     Indication: RASH
     Dosage: 190
     Route: 061
     Dates: start: 20150113
  22. LANSOPRAZOLE. [Concomitant]
     Active Substance: LANSOPRAZOLE
     Indication: DYSPEPSIA
     Route: 048
     Dates: start: 20150209
  23. CIPROFLOXACIN. [Concomitant]
     Active Substance: CIPROFLOXACIN
     Indication: NEUTROPENIA
     Route: 048
     Dates: start: 20150622, end: 20150702
  24. LORAZEPAM. [Concomitant]
     Active Substance: LORAZEPAM
     Indication: ANXIETY
     Route: 048
     Dates: start: 20150421

REACTIONS (1)
  - Febrile neutropenia [Recovered/Resolved]

NARRATIVE: CASE EVENT DATE: 20150623
